FAERS Safety Report 4521646-6 (Version None)
Quarter: 2004Q4

REPORT INFORMATION
  Report Type: 
  Country: None (occurrence: None)
  Receive Date: 20041208
  Receipt Date: 20041208
  Transmission Date: 20050328
  Serious: Yes (Other)
  Sender: FDA-Public Use
  Company Number: None

PATIENT
  Sex: Female
  Weight: 194 kg

DRUGS (8)
  1. GEMCITABINE [Suspect]
     Indication: METASTATIC NEOPLASM
     Dosage: 2440 MG
     Dates: start: 20040920
  2. GEMCITABINE [Suspect]
     Indication: SARCOMA
     Dosage: 2440 MG
     Dates: start: 20040920
  3. GEMCITABINE [Suspect]
     Dosage: 2440 MG
     Dates: start: 20040927
  4. NEUPOGEN [Concomitant]
  5. ONDANSETRON [Concomitant]
  6. TOPROL-XL [Concomitant]
  7. NORVASC [Concomitant]
  8. ASPIRIN [Concomitant]

REACTIONS (5)
  - BIOPSY SKIN ABNORMAL [None]
  - INDURATION [None]
  - OSTEOSARCOMA METASTATIC [None]
  - RASH ERYTHEMATOUS [None]
  - RASH GENERALISED [None]
